FAERS Safety Report 23284430 (Version 1)
Quarter: 2023Q4

REPORT INFORMATION
  Report Type: Report from Study
  Country: US (occurrence: US)
  Receive Date: 20231211
  Receipt Date: 20231211
  Transmission Date: 20240109
  Serious: Yes (Other)
  Sender: FDA-Public Use
  Company Number: US-MYLANLABS-2023M1130425

PATIENT
  Sex: Female

DRUGS (2)
  1. HEPARIN [Suspect]
     Active Substance: HEPARIN SODIUM
     Indication: Thrombosis prophylaxis
     Dosage: UNK UNK, TID (THREE TIMES DAILY; FIRST DOSE ADMINISTERED IN THE OPERATING ROOM PRIOR TO EXCISION)
     Route: 058
  2. DALTEPARIN [Suspect]
     Active Substance: DALTEPARIN
     Indication: Thrombosis prophylaxis
     Dosage: UNK, INITIATED ON POST-OPERATIVE DAY 2
     Route: 065

REACTIONS (1)
  - Drug ineffective [Unknown]
